FAERS Safety Report 16732721 (Version 1)
Quarter: 2019Q3

REPORT INFORMATION
  Report Type: Spontaneous
  Country: US (occurrence: US)
  Receive Date: 20190823
  Receipt Date: 20190823
  Transmission Date: 20191005
  Serious: No
  Sender: FDA-Public Use
  Company Number: US-JNJFOC-20190815384

PATIENT
  Age: 7 Decade
  Sex: Female

DRUGS (1)
  1. TYLENOL [Suspect]
     Active Substance: ACETAMINOPHEN
     Indication: ANALGESIC THERAPY
     Dosage: 2 TABLETS WHEN NEEDED
     Route: 048

REACTIONS (3)
  - Product packaging issue [Unknown]
  - Product package associated injury [Recovered/Resolved]
  - Product physical issue [Unknown]
